FAERS Safety Report 13771776 (Version 1)
Quarter: 2017Q3

REPORT INFORMATION
  Report Type: Spontaneous
  Country: US (occurrence: US)
  Receive Date: 20170720
  Receipt Date: 20170720
  Transmission Date: 20171127
  Serious: No
  Sender: FDA-Public Use
  Company Number: US-PFIZER INC-2017313959

PATIENT
  Sex: Female

DRUGS (7)
  1. AMOXYCILLIN [Suspect]
     Active Substance: AMOXICILLIN
  2. LEVAQUIN [Suspect]
     Active Substance: LEVOFLOXACIN
  3. TRAMADOL. [Suspect]
     Active Substance: TRAMADOL
  4. CYMBALTA [Suspect]
     Active Substance: DULOXETINE HYDROCHLORIDE
  5. NEXPLANON [Suspect]
     Active Substance: ETONOGESTREL
  6. LEVOXYL [Suspect]
     Active Substance: LEVOTHYROXINE SODIUM
     Dosage: UNK
  7. OXYCODONE [Suspect]
     Active Substance: OXYCODONE

REACTIONS (1)
  - Drug hypersensitivity [Unknown]
